FAERS Safety Report 8813950 (Version 2)
Quarter: 2015Q2

REPORT INFORMATION
  Report Type: Report from Study
  Country: US (occurrence: US)
  Receive Date: 20120928
  Receipt Date: 20150407
  Transmission Date: 20150821
  Serious: Yes (Death)
  Sender: FDA-Public Use
  Company Number: US-ROCHE-1129878

PATIENT
  Age: 72 Year
  Sex: Female

DRUGS (20)
  1. HERCEPTIN [Suspect]
     Active Substance: TRASTUZUMAB
     Route: 042
  2. GRANISETRON [Concomitant]
     Active Substance: GRANISETRON
     Route: 048
  3. CARBOPLATIN. [Concomitant]
     Active Substance: CARBOPLATIN
     Route: 042
  4. VALIUM [Suspect]
     Active Substance: DIAZEPAM
     Indication: PRODUCT USED FOR UNKNOWN INDICATION
     Route: 065
  5. ONDANSETRON [Concomitant]
     Active Substance: ONDANSETRON
     Route: 048
  6. DEXAMETHASONE. [Concomitant]
     Active Substance: DEXAMETHASONE
     Route: 048
  7. DIPHENHYDRAMINE [Concomitant]
     Active Substance: DIPHENHYDRAMINE
     Route: 042
  8. ARANESP [Concomitant]
     Active Substance: DARBEPOETIN ALFA
     Route: 058
  9. HERCEPTIN [Suspect]
     Active Substance: TRASTUZUMAB
     Indication: UTERINE CANCER
     Route: 042
     Dates: start: 20061220
  10. CARBOPLATIN. [Concomitant]
     Active Substance: CARBOPLATIN
     Dosage: DOSE: AUC 5
     Route: 042
  11. CARBOPLATIN. [Concomitant]
     Active Substance: CARBOPLATIN
     Route: 042
  12. DIPHENHYDRAMINE [Concomitant]
     Active Substance: DIPHENHYDRAMINE
     Route: 042
  13. TYLENOL [Concomitant]
     Active Substance: ACETAMINOPHEN
  14. BENADRYL [Concomitant]
     Active Substance: DIPHENHYDRAMINE HYDROCHLORIDE
     Route: 042
  15. HERCEPTIN [Suspect]
     Active Substance: TRASTUZUMAB
     Route: 042
  16. GRANISETRON [Concomitant]
     Active Substance: GRANISETRON
     Route: 048
  17. HERCEPTIN [Suspect]
     Active Substance: TRASTUZUMAB
     Route: 042
  18. BENADRYL [Concomitant]
     Active Substance: DIPHENHYDRAMINE HYDROCHLORIDE
     Route: 042
  19. DEXAMETHASONE. [Concomitant]
     Active Substance: DEXAMETHASONE
     Route: 042
  20. PROCHLORPERAZINE. [Concomitant]
     Active Substance: PROCHLORPERAZINE
     Route: 048

REACTIONS (6)
  - Death [Fatal]
  - Chills [Unknown]
  - Fatigue [Unknown]
  - Off label use [Unknown]
  - Nausea [Unknown]
  - Hypersensitivity [Unknown]

NARRATIVE: CASE EVENT DATE: 20080318
